FAERS Safety Report 9029106 (Version 1)
Quarter: 2013Q1

REPORT INFORMATION
  Report Type: Spontaneous
  Country: US (occurrence: US)
  Receive Date: 20130122
  Receipt Date: 20130122
  Transmission Date: 20140127
  Serious: Yes (Hospitalization)
  Sender: FDA-Public Use
  Company Number: US-PFIZER INC-2013020321

PATIENT
  Age: 17 Year
  Sex: Male

DRUGS (4)
  1. LEVETIRACETAM [Suspect]
     Indication: CONVULSION
     Dosage: 250 MG, 2X/DAY
     Route: 065
  2. LEVETIRACETAM [Suspect]
     Dosage: 500 MG, 2X/DAY
     Route: 065
  3. PHENYTOIN [Suspect]
     Indication: CONVULSION
     Dosage: UNK
     Route: 065
  4. CHLORPROMAZINE [Concomitant]
     Indication: AUTISM SPECTRUM DISORDER
     Dosage: UNK
     Route: 065

REACTIONS (5)
  - Pancreatitis acute [Recovered/Resolved]
  - Irritability [Recovered/Resolved]
  - Vomiting [Recovered/Resolved]
  - Abdominal pain [Recovered/Resolved]
  - Product taste abnormal [Unknown]
